FAERS Safety Report 7813720-3 (Version None)
Quarter: 2011Q4

REPORT INFORMATION
  Report Type: 
  Country: None (occurrence: None)
  Receive Date: 20111014
  Receipt Date: 20111010
  Transmission Date: 20120403
  Serious: Yes (Death, Hospitalization)
  Sender: FDA-Public Use
  Company Number: US-ELI_LILLY_AND_COMPANY-09-02-16743

PATIENT
  Sex: Male
  Weight: 84.58 kg

DRUGS (9)
  1. METFORMIN HYDROCHLORIDE [Concomitant]
     Dosage: 500 MG, BID
     Route: 048
  2. FOLIC ACID [Concomitant]
     Dosage: 1 MG, QD
     Route: 048
  3. ASPIRIN [Concomitant]
     Dosage: 81 MG, QD
     Route: 048
  4. LISINOPRIL [Concomitant]
  5. METOPROLOL TARTRATE [Concomitant]
     Route: 048
  6. FRAGMIN [Concomitant]
     Dosage: 5000 IU, BID
     Route: 058
  7. PEMETREXED [Suspect]
     Indication: NON-SMALL CELL LUNG CANCER METASTATIC
     Dosage: 950 MG, OTHER
     Route: 042
     Dates: start: 20090204, end: 20090408
  8. JANUVIA [Concomitant]
     Dosage: 100 MG, BID
     Route: 048
  9. SIMVASTATIN [Concomitant]

REACTIONS (4)
  - FEBRILE NEUTROPENIA [None]
  - RENAL FAILURE ACUTE [None]
  - DISEASE PROGRESSION [None]
  - PNEUMONIA [None]
